FAERS Safety Report 11094526 (Version 1)
Quarter: 2015Q2

REPORT INFORMATION
  Report Type: Spontaneous
  Country: US (occurrence: US)
  Receive Date: 20150506
  Receipt Date: 20150506
  Transmission Date: 20150821
  Serious: No
  Sender: FDA-Public Use
  Company Number: US-ANACOR-2015ANA00008

PATIENT
  Age: 81 Year
  Sex: Female
  Weight: 58.96 kg

DRUGS (1)
  1. KERYDIN [Suspect]
     Active Substance: TAVABOROLE
     Indication: TINEA PEDIS
     Dosage: UNK, 1X/DAY
     Route: 061
     Dates: start: 201502, end: 20150219

REACTIONS (2)
  - Application site pain [Recovering/Resolving]
  - Application site erythema [Recovering/Resolving]

NARRATIVE: CASE EVENT DATE: 20150219
